FAERS Safety Report 7967326-6 (Version None)
Quarter: 2011Q4

REPORT INFORMATION
  Report Type: 
  Country: None (occurrence: None)
  Receive Date: 20111209
  Receipt Date: 20111206
  Transmission Date: 20120403
  Serious: Yes (Hospitalization)
  Sender: FDA-Public Use
  Company Number: JP-B.I. PHARMACEUTICALS,INC./RIDGEFIELD-2011-BP-27532NB

PATIENT

DRUGS (4)
  1. PRADAXA [Suspect]
     Dosage: 185 MG
     Route: 048
     Dates: start: 20111004
  2. PRADAXA [Suspect]
     Dosage: 75 MG
     Route: 048
  3. PRADAXA [Suspect]
     Dosage: 110 MG
     Route: 048
  4. PRADAXA [Suspect]
     Dosage: 220 MG
     Route: 048

REACTIONS (3)
  - DIZZINESS POSTURAL [None]
  - HOSPITALISATION [None]
  - DIZZINESS [None]
